FAERS Safety Report 7363198-1 (Version None)
Quarter: 2011Q1

REPORT INFORMATION
  Report Type: 
  Country: None (occurrence: None)
  Receive Date: 20110321
  Receipt Date: 20110228
  Transmission Date: 20110831
  Serious: Yes (Other)
  Sender: FDA-Public Use
  Company Number: US-BAYER-200934714NA

PATIENT
  Sex: Male
  Weight: 115.19 kg

DRUGS (21)
  1. TRASYLOL [Suspect]
     Dosage: INFUSION AT UNKNOWN RATE
  2. COZAAR [Concomitant]
     Dosage: 100MG/25 DAILY
     Route: 048
  3. ANCEF [Concomitant]
     Dosage: DURING SURGERY
  4. UNCODEABLE ^UNCLASSIFIABLE^ [Concomitant]
     Dosage: UNK UNK, TID
     Route: 048
  5. XANAX [Concomitant]
  6. HEPARIN SODIUM [Concomitant]
     Dosage: DURING SURGERY
  7. ALLOPURINOL [Concomitant]
     Dosage: 300 MG, QD
     Route: 048
  8. AMOXICILLIN [Concomitant]
     Dosage: UNK UNK, TID
     Route: 048
  9. LANTUS [Concomitant]
     Dosage: 15 UNITS AT SUPPER
  10. LASIX [Concomitant]
     Dosage: 20 MG, UNK DURING SURGERY
     Route: 042
  11. LASIX [Concomitant]
     Dosage: UNKNOWN
  12. PROMETHAZINE [Concomitant]
     Dosage: 25MG 1/2 TABLET
     Route: 048
  13. TORSEMIDE [Concomitant]
     Dosage: 10 MG, BID
     Route: 048
  14. NEURONTIN [Concomitant]
     Dosage: 600 MG, UNK
     Route: 048
  15. GLIPIZIDE [Concomitant]
     Dosage: UNK UNK, QD
     Route: 048
  16. UNCODEABLE ^UNCLASSIFIABLE^ [Concomitant]
     Dosage: 10MG BEFORE SLEEP
  17. TRASYLOL [Suspect]
     Indication: CORONARY ARTERY BYPASS
     Dosage: 1 ML
     Route: 042
     Dates: start: 20050408, end: 20050408
  18. NITROGLYCERIN [Concomitant]
  19. PROTONIX [Concomitant]
  20. ALPRAZOLAM [Concomitant]
     Dosage: 25MG EVERY 8 HOURS
  21. UNCODEABLE ^UNCLASSIFIABLE^ [Concomitant]
     Dosage: DURING SURGERY

REACTIONS (8)
  - ANHEDONIA [None]
  - RENAL FAILURE [None]
  - ANXIETY [None]
  - FEAR [None]
  - DEPRESSION [None]
  - PAIN [None]
  - INJURY [None]
  - UNEVALUABLE EVENT [None]
